FAERS Safety Report 8721503 (Version 2)
Quarter: 2012Q4

REPORT INFORMATION
  Report Type: 
  Country: US (occurrence: US)
  Receive Date: 20120813
  Receipt Date: 20121203
  Transmission Date: 20130627
  Serious: Yes (Other)
  Sender: FDA-Public Use
  Company Number: US-BAYER-2012-081824

PATIENT
  Age: 21 Year
  Sex: Female
  Weight: 52.15 kg

DRUGS (4)
  1. MIRENA [Suspect]
     Indication: CONTRACEPTION
     Dosage: 20 mcg/24hr, CONT
     Route: 015
     Dates: start: 20120627, end: 20120808
  2. IRON [Concomitant]
  3. LIDOCAINE [Concomitant]
     Indication: ANESTHESIA LOCAL
     Dosage: UNK
     Dates: start: 20120627, end: 20120627
  4. BETADINE [Concomitant]
     Dosage: UNK
     Dates: start: 20120627, end: 20120627

REACTIONS (5)
  - Genital haemorrhage [Recovered/Resolved]
  - Device expulsion [None]
  - Vaginal haemorrhage [None]
  - Dysmenorrhoea [None]
  - Abdominal pain lower [None]
